FAERS Safety Report 9103999 (Version 1)
Quarter: 2013Q1

REPORT INFORMATION
  Report Type: Spontaneous
  Country: US (occurrence: US)
  Receive Date: 20130219
  Receipt Date: 20130219
  Transmission Date: 20140127
  Serious: Yes (Hospitalization)
  Sender: FDA-Public Use
  Company Number: US-SANOFI-AVENTIS-2013SA013552

PATIENT
  Sex: Female

DRUGS (2)
  1. LANTUS [Suspect]
  2. NOVOLOG [Concomitant]

REACTIONS (1)
  - Diabetic ketoacidosis [Unknown]
